FAERS Safety Report 16567228 (Version 14)
Quarter: 2020Q2

REPORT INFORMATION
  Report Type: Spontaneous
  Country: JP (occurrence: JP)
  Receive Date: 20190712
  Receipt Date: 20200508
  Transmission Date: 20200713
  Serious: Yes (Other)
  Sender: FDA-Public Use
  Company Number: JP-BAUSCH-BL-2019-020103

PATIENT
  Age: 70 Year
  Sex: Male
  Weight: 71 kg

DRUGS (14)
  1. PREDNISOLONE. [Suspect]
     Active Substance: PREDNISOLONE
     Route: 065
     Dates: start: 20190912, end: 2019
  2. OXAROL [Concomitant]
     Active Substance: MAXACALCITOL
     Indication: PRODUCT USED FOR UNKNOWN INDICATION
     Dates: start: 20180222, end: 20190705
  3. PREDNISOLONE. [Suspect]
     Active Substance: PREDNISOLONE
     Indication: PEMPHIGUS
     Route: 065
     Dates: start: 20190717, end: 201907
  4. METHYCOBAL [Concomitant]
     Active Substance: METHYLCOBALAMIN
     Indication: PRODUCT USED FOR UNKNOWN INDICATION
     Dates: start: 20170905
  5. HIRUDOID [Concomitant]
     Active Substance: GLYCOSAMINOGLYCANS
     Indication: PRODUCT USED FOR UNKNOWN INDICATION
     Dates: start: 20171214
  6. TIGASON [Concomitant]
     Indication: PRODUCT USED FOR UNKNOWN INDICATION
     Dates: start: 20170721, end: 20190516
  7. OLOPATADINE HYDROCHLORIDE OD [Concomitant]
     Indication: PRODUCT USED FOR UNKNOWN INDICATION
     Dates: start: 20170711
  8. LUMICEF [Suspect]
     Active Substance: BRODALUMAB
     Dosage: SYRINGE; DISCONTINUED AFTER 5 DOSES
     Route: 058
     Dates: start: 20190613, end: 20190627
  9. LUMICEF [Suspect]
     Active Substance: BRODALUMAB
     Indication: ERYTHRODERMIC PSORIASIS
     Dosage: SYRINGE
     Route: 058
     Dates: start: 20190516, end: 20190530
  10. PREDNISOLONE. [Suspect]
     Active Substance: PREDNISOLONE
     Route: 065
     Dates: start: 20190722, end: 2019
  11. PREDNISOLONE. [Suspect]
     Active Substance: PREDNISOLONE
     Route: 065
     Dates: start: 20191010
  12. PREDNISOLONE. [Suspect]
     Active Substance: PREDNISOLONE
     Route: 065
     Dates: start: 20200213
  13. SENNOSIDE (SENNOSIDE A PLUS B CALCIUM) [Concomitant]
     Indication: PRODUCT USED FOR UNKNOWN INDICATION
     Dates: start: 20170712
  14. MYSER [Concomitant]
     Indication: PRODUCT USED FOR UNKNOWN INDICATION
     Dates: start: 20170714

REACTIONS (3)
  - Fungal infection [Unknown]
  - Herpes zoster [Unknown]
  - Pemphigus [Recovering/Resolving]

NARRATIVE: CASE EVENT DATE: 201906
